FAERS Safety Report 19467653 (Version 1)
Quarter: 2021Q2

REPORT INFORMATION
  Report Type: Spontaneous
  Country: US (occurrence: US)
  Receive Date: 20210626
  Receipt Date: 20210626
  Transmission Date: 20210717
  Serious: Yes (Hospitalization)
  Sender: FDA-Public Use
  Company Number: None

PATIENT
  Age: 31 Year
  Sex: Female
  Weight: 62.9 kg

DRUGS (4)
  1. VINCRISTINE SULFATE. [Suspect]
     Active Substance: VINCRISTINE SULFATE
     Dates: end: 20210511
  2. METHOTREXATE. [Suspect]
     Active Substance: METHOTREXATE
     Dates: end: 20210525
  3. MERCAPTOPURINE. [Suspect]
     Active Substance: MERCAPTOPURINE
     Dates: end: 20210526
  4. DEXAMETHASONE. [Suspect]
     Active Substance: DEXAMETHASONE
     Indication: PRODUCT USED FOR UNKNOWN INDICATION
     Dates: end: 20210515

REACTIONS (20)
  - Therapy interrupted [None]
  - Toxicity to various agents [None]
  - Herpes zoster cutaneous disseminated [None]
  - Erythema [None]
  - Exfoliative rash [None]
  - Epstein-Barr virus antibody positive [None]
  - Skin bacterial infection [None]
  - Escherichia infection [None]
  - Mouth ulceration [None]
  - Hypophagia [None]
  - Superinfection [None]
  - Pancytopenia [None]
  - Skin ulcer [None]
  - Mucosal ulceration [None]
  - Pain [None]
  - Neutropenia [None]
  - Erythropoiesis abnormal [None]
  - Localised infection [None]
  - Liver function test increased [None]
  - Febrile neutropenia [None]

NARRATIVE: CASE EVENT DATE: 20210527
